FAERS Safety Report 16731088 (Version 1)
Quarter: 2019Q3

REPORT INFORMATION
  Report Type: Report from Study
  Country: IT (occurrence: IT)
  Receive Date: 20190822
  Receipt Date: 20190822
  Transmission Date: 20191005
  Serious: Yes (Other)
  Sender: FDA-Public Use
  Company Number: IT-TEVA-2019-IT-1094866

PATIENT
  Age: 45 Year
  Sex: Male

DRUGS (2)
  1. QUETIAPINE FUMARATE. [Suspect]
     Active Substance: QUETIAPINE FUMARATE
     Indication: AFFECTIVE DISORDER
     Dosage: 200 MILLIGRAM
     Route: 048
     Dates: start: 20190418, end: 20190801
  2. DEPAKIN CHRONO 500 MG COMPRESSE A RILASCIO PROLUNGATO [Suspect]
     Active Substance: VALPROIC ACID
     Indication: AFFECTIVE DISORDER
     Dosage: 3 DOSAGE FORMS
     Route: 048
     Dates: start: 20190419, end: 20190801

REACTIONS (1)
  - Blindness [Not Recovered/Not Resolved]

NARRATIVE: CASE EVENT DATE: 20190801
